FAERS Safety Report 9624255 (Version 2)
Quarter: 2013Q4

REPORT INFORMATION
  Report Type: Spontaneous
  Country: IT (occurrence: IT)
  Receive Date: 20131015
  Receipt Date: 20131022
  Transmission Date: 20140711
  Serious: Yes (Other)
  Sender: FDA-Public Use
  Company Number: IT-TEVA-436576ISR

PATIENT
  Age: 50 Year
  Sex: Female

DRUGS (4)
  1. TOPIRAMATE [Suspect]
     Indication: CONVULSION
     Dosage: 200 MILLIGRAM DAILY;
     Route: 065
  2. PHENOBARBITAL [Concomitant]
     Indication: CONVULSION
     Dosage: 100 MILLIGRAM DAILY;
     Route: 065
  3. CLONAZEPAM [Concomitant]
     Indication: CONVULSION
     Dosage: .5 MILLIGRAM DAILY;
     Route: 065
  4. LEVETIRACETAM [Concomitant]
     Indication: CONVULSION
     Dosage: 500 MILLIGRAM DAILY;
     Route: 065

REACTIONS (2)
  - Disorientation [Unknown]
  - Vision blurred [Unknown]
